FAERS Safety Report 6028329-4 (Version None)
Quarter: 2009Q1

REPORT INFORMATION
  Report Type: 
  Country: None (occurrence: None)
  Receive Date: 20090106
  Receipt Date: 20081230
  Transmission Date: 20090719
  Serious: Yes (Other)
  Sender: FDA-Public Use
  Company Number: US-BAYER-200841047NA

PATIENT
  Age: 47 Year
  Sex: Male

DRUGS (4)
  1. LEVITRA [Suspect]
     Indication: ERECTILE DYSFUNCTION
  2. ZOCOR [Concomitant]
  3. LISINOPRIL [Concomitant]
  4. PRILOSEC [Concomitant]

REACTIONS (2)
  - DEAFNESS UNILATERAL [None]
  - TINNITUS [None]
